FAERS Safety Report 10396989 (Version 1)
Quarter: 2014Q3

REPORT INFORMATION
  Report Type: Spontaneous
  Country: BR (occurrence: BR)
  Receive Date: 20140820
  Receipt Date: 20140820
  Transmission Date: 20150326
  Serious: Yes (Hospitalization, Other)
  Sender: FDA-Public Use
  Company Number: BR-ABBVIE-14P-020-1273078-00

PATIENT
  Sex: Female

DRUGS (2)
  1. HUMIRA [Suspect]
     Active Substance: ADALIMUMAB
     Indication: CROHN^S DISEASE
  2. AZATHIOPRINE. [Concomitant]
     Active Substance: AZATHIOPRINE
     Indication: CROHN^S DISEASE

REACTIONS (7)
  - Intestinal perforation [Recovered/Resolved]
  - Coma [Recovered/Resolved]
  - Cardiac disorder [Recovered/Resolved]
  - Weight increased [Unknown]
  - Renal failure [Recovered/Resolved]
  - Acute pulmonary oedema [Recovered/Resolved]
  - Abdominal distension [Recovered/Resolved]
